FAERS Safety Report 5939574-8 (Version None)
Quarter: 2008Q4

REPORT INFORMATION
  Report Type: 
  Country: None (occurrence: None)
  Receive Date: 20081030
  Receipt Date: 20081014
  Transmission Date: 20090506
  Serious: Yes (Other)
  Sender: FDA-Public Use
  Company Number: 2008US002794

PATIENT
  Age: 39 Year
  Sex: Female

DRUGS (5)
  1. PROGRAF [Suspect]
     Indication: LIVER TRANSPLANT
  2. MYCOPHENOLATE MOFETIL [Suspect]
     Indication: LIVER TRANSPLANT
  3. PREDNISOLONE ACETATE [Suspect]
     Indication: LIVER TRANSPLANT
  4. CORTICOSTEROID NOS (CORTICOSTEROID NOS) [Concomitant]
  5. MUROMONAB-CD3 (MUROMONAB-CD3 [Concomitant]

REACTIONS (6)
  - ANAL FISTULA [None]
  - CROHN'S DISEASE [None]
  - CYTOMEGALOVIRUS INFECTION [None]
  - PERIRECTAL ABSCESS [None]
  - PYREXIA [None]
  - WEIGHT DECREASED [None]
